FAERS Safety Report 6414429-3 (Version None)
Quarter: 2009Q4

REPORT INFORMATION
  Report Type: 
  Country: None (occurrence: None)
  Receive Date: 20091026
  Receipt Date: 20091015
  Transmission Date: 20100525
  Serious: Yes (Hospitalization, Other)
  Sender: FDA-Public Use
  Company Number: PHEH2009US13013

PATIENT
  Sex: Male
  Weight: 82.7 kg

DRUGS (7)
  1. EXJADE [Suspect]
     Indication: MYELODYSPLASTIC SYNDROME
     Dosage: 1500 MG, QD
     Route: 048
     Dates: start: 20090627, end: 20090719
  2. EXJADE [Suspect]
     Indication: IRON OVERLOAD
  3. EXJADE [Suspect]
     Indication: TRANSFUSION
  4. ANALGESICS [Concomitant]
  5. DIURETICS [Concomitant]
  6. VIDAZA [Concomitant]
  7. CALCIUM [Concomitant]

REACTIONS (12)
  - ANAEMIA [None]
  - BACK PAIN [None]
  - CARDIOMYOPATHY [None]
  - DYSSTASIA [None]
  - EJECTION FRACTION DECREASED [None]
  - GAIT DISTURBANCE [None]
  - PLATELET COUNT DECREASED [None]
  - RENAL FAILURE ACUTE [None]
  - SPINAL COMPRESSION FRACTURE [None]
  - SPINAL LAMINECTOMY [None]
  - URINARY RETENTION [None]
  - URINARY TRACT INFECTION [None]
